FAERS Safety Report 10862176 (Version 1)
Quarter: 2015Q1

REPORT INFORMATION
  Report Type: Spontaneous
  Country: CH (occurrence: CH)
  Receive Date: 20150224
  Receipt Date: 20150224
  Transmission Date: 20150721
  Serious: Yes (Other)
  Sender: FDA-Public Use
  Company Number: CH-PFIZER INC-2015063947

PATIENT
  Sex: Male
  Weight: 1.16 kg

DRUGS (6)
  1. RIVOTRIL [Suspect]
     Active Substance: CLONAZEPAM
     Indication: BORDERLINE PERSONALITY DISORDER
     Dosage: 2 MG, 1X/DAY
     Route: 064
     Dates: start: 2013
  2. TRITTICO [Suspect]
     Active Substance: TRAZODONE HYDROCHLORIDE
     Indication: BORDERLINE PERSONALITY DISORDER
     Dosage: 100 MG, 1X/DAY
     Route: 064
  3. ZOLOFT [Suspect]
     Active Substance: SERTRALINE HYDROCHLORIDE
     Indication: BORDERLINE PERSONALITY DISORDER
     Dosage: 50 MG, 1X/DAY
     Route: 064
  4. SOMNIUM (DIPHENHYDRAMINE HYDROCHLORIDE/LORAZEPAM) [Suspect]
     Active Substance: DIPHENHYDRAMINE\LORAZEPAM
     Dosage: 1 MG, AS NEEDED
     Route: 064
  5. ADALAT [Concomitant]
     Active Substance: NIFEDIPINE
     Indication: TOCOLYSIS
     Dosage: 30 MG, 2X/DAY
     Route: 064
     Dates: start: 20141014
  6. TRACTOCILE [Concomitant]
     Active Substance: ATOSIBAN
     Indication: TOCOLYSIS
     Dosage: UNK
     Route: 064
     Dates: start: 20141012, end: 20141013

REACTIONS (11)
  - Maternal exposure during pregnancy [Recovered/Resolved]
  - Breech presentation [Recovered/Resolved]
  - Candida infection [Recovered/Resolved]
  - Neonatal respiratory distress syndrome [Recovered/Resolved]
  - Apnoea neonatal [Recovered/Resolved]
  - Tremor [Recovered/Resolved]
  - Premature baby [Recovered/Resolved]
  - Hyperbilirubinaemia neonatal [Recovered/Resolved]
  - Polyhydramnios [Recovered/Resolved]
  - Anaemia neonatal [Recovered/Resolved]
  - Cerebral haemorrhage neonatal [Recovered/Resolved]

NARRATIVE: CASE EVENT DATE: 2014
